FAERS Safety Report 4350070-4 (Version None)
Quarter: 2004Q2

REPORT INFORMATION
  Report Type: 
  Country: None (occurrence: None)
  Receive Date: 20040429
  Receipt Date: 20040423
  Transmission Date: 20050107
  Serious: Yes (Hospitalization)
  Sender: FDA-Public Use
  Company Number: US-MERCK-0404USA02146

PATIENT
  Age: 57 Year
  Sex: Female

DRUGS (11)
  1. CORDARONE [Concomitant]
     Route: 065
     Dates: end: 20031101
  2. CORDARONE [Concomitant]
     Route: 065
     Dates: start: 20030101
  3. ASPIRIN [Concomitant]
     Route: 065
     Dates: end: 20031101
  4. ASPIRIN [Concomitant]
     Route: 065
     Dates: start: 20030101
  5. ZETIA [Suspect]
     Indication: HYPERCHOLESTEROLAEMIA
     Route: 048
     Dates: start: 20030101, end: 20031101
  6. UNITHROID [Concomitant]
     Route: 065
     Dates: end: 20031101
  7. UNITHROID [Concomitant]
     Route: 065
     Dates: start: 20030101
  8. TOPROL-XL [Concomitant]
     Route: 048
     Dates: end: 20031101
  9. TOPROL-XL [Concomitant]
     Route: 048
     Dates: start: 20030101
  10. ACCUPRIL [Concomitant]
     Route: 065
     Dates: end: 20031101
  11. ACCUPRIL [Concomitant]
     Route: 065
     Dates: start: 20030101

REACTIONS (1)
  - ABDOMINAL DISTENSION [None]
